FAERS Safety Report 6098449-7 (Version None)
Quarter: 2009Q1

REPORT INFORMATION
  Report Type: 
  Country: None (occurrence: None)
  Receive Date: 20090302
  Receipt Date: 20090223
  Transmission Date: 20090719
  Serious: Yes (Disabling, Other)
  Sender: FDA-Public Use
  Company Number: US-ALLERGAN-0901775US

PATIENT
  Sex: Female
  Weight: 61.224 kg

DRUGS (2)
  1. BOTOX COSMETIC [Suspect]
     Indication: SKIN WRINKLING
     Dosage: 35 UNITS, SINGLE
     Route: 030
     Dates: start: 20080801, end: 20080801
  2. LEVOXYL [Concomitant]
     Indication: HYPOTHYROIDISM
     Dosage: UNK, QD
     Route: 048

REACTIONS (7)
  - ASTHENIA [None]
  - DEAFNESS [None]
  - DIZZINESS [None]
  - DYSPNOEA [None]
  - LABYRINTHITIS [None]
  - NAUSEA [None]
  - VERTIGO [None]
